FAERS Safety Report 18426104 (Version 2)
Quarter: 2020Q4

REPORT INFORMATION
  Report Type: Spontaneous
  Country: US (occurrence: US)
  Receive Date: 20201026
  Receipt Date: 20201026
  Transmission Date: 20210114
  Serious: No
  Sender: FDA-Public Use
  Company Number: US-GALDERMA-US2020029506

PATIENT
  Sex: Female

DRUGS (6)
  1. PROACTIV EYE BRIGHTENING SERUM [Concomitant]
     Active Substance: COSMETICS
     Indication: SENSITIVE SKIN
     Route: 061
  2. PROACTIV MD DAILY OIL CONTROL SPF 30 [Suspect]
     Active Substance: AVOBENZONE\OCTISALATE\OCTOCRYLENE
     Indication: SENSITIVE SKIN
     Route: 061
  3. PROACTIV MD DEEP CLEANSING FACE WASH [Concomitant]
     Active Substance: COSMETICS
     Indication: SENSITIVE SKIN
     Route: 061
  4. PROACTIV GREEN TEA MOISTURIZER [Concomitant]
     Active Substance: COSMETICS
     Indication: SENSITIVE SKIN
     Route: 061
  5. PROACTIV MD ADAPALENE ACNE TREATMENT [Suspect]
     Active Substance: ADAPALENE
     Indication: SENSITIVE SKIN
     Dosage: 0.1%
     Route: 061
  6. PROACTIV MD BALANCING TONER [Concomitant]
     Active Substance: COSMETICS
     Indication: SENSITIVE SKIN
     Route: 061

REACTIONS (4)
  - Skin irritation [Unknown]
  - Product use in unapproved indication [Recovered/Resolved]
  - Skin burning sensation [Unknown]
  - Eye irritation [Unknown]
